FAERS Safety Report 16718639 (Version 1)
Quarter: 2019Q3

REPORT INFORMATION
  Report Type: Report from Study
  Country: US (occurrence: US)
  Receive Date: 20190820
  Receipt Date: 20190820
  Transmission Date: 20191005
  Serious: Yes (Hospitalization)
  Sender: FDA-Public Use
  Company Number: US-KARYOPHARM THERAPEUTICS, INC.-2017KPT000634

PATIENT
  Age: 50 Year
  Sex: Female

DRUGS (16)
  1. ALBUTEROL SULFATE. [Concomitant]
     Active Substance: ALBUTEROL SULFATE
     Indication: DYSPNOEA
     Dosage: 2.5 MG, Q6H
     Route: 055
     Dates: start: 20170428
  2. ONDANSETRON [Concomitant]
     Active Substance: ONDANSETRON
     Indication: NAUSEA
     Dosage: 8 MG, PRN
     Route: 048
     Dates: start: 20170428
  3. PROCHLORPERAZINE. [Concomitant]
     Active Substance: PROCHLORPERAZINE
     Indication: NAUSEA
     Dosage: 10 MG, Q6H PRN
     Route: 048
     Dates: start: 20170428
  4. ONDANSETRON [Concomitant]
     Active Substance: ONDANSETRON
     Indication: VOMITING
     Dosage: 4 MG, Q6H PRN
     Route: 002
     Dates: start: 20170921
  5. HYDROCODONE [Concomitant]
     Active Substance: HYDROCODONE
     Indication: PAIN
     Dosage: 1 TABLET, Q4H PRN
     Route: 048
     Dates: start: 20170501
  6. PANTOPRAZOLE [Concomitant]
     Active Substance: PANTOPRAZOLE
     Indication: PRODUCT USED FOR UNKNOWN INDICATION
     Dosage: 40 MG, QD
     Route: 048
     Dates: start: 20170921
  7. INSULIN GLARGINE [Concomitant]
     Active Substance: INSULIN GLARGINE
     Indication: PRODUCT USED FOR UNKNOWN INDICATION
     Dosage: 40 UNITS, QD AT BEDTIME
     Route: 058
     Dates: start: 20170428
  8. TOBRAMYCIN. [Concomitant]
     Active Substance: TOBRAMYCIN
     Indication: PRODUCT USED FOR UNKNOWN INDICATION
     Dosage: 2 DROPS, Q4H RIGHT EYE
     Route: 047
     Dates: start: 20170921
  9. OXYCODONE [Concomitant]
     Active Substance: OXYCODONE
     Indication: PAIN
     Dosage: 10 MG BID PRN
     Route: 048
     Dates: start: 20170103
  10. CITALOPRAM [Concomitant]
     Active Substance: CITALOPRAM HYDROBROMIDE
     Indication: PRODUCT USED FOR UNKNOWN INDICATION
     Dosage: 20 MG, QD AT BEDTIME
     Route: 048
     Dates: start: 20170428
  11. PROCHLORPERAZINE. [Concomitant]
     Active Substance: PROCHLORPERAZINE
     Indication: VOMITING
  12. SELINEXOR [Suspect]
     Active Substance: SELINEXOR
     Indication: PLASMA CELL MYELOMA
     Dosage: 80 MG, 2X/WEEK
     Route: 048
     Dates: start: 20170818
  13. ACYCLOVIR. [Concomitant]
     Active Substance: ACYCLOVIR
     Indication: PRODUCT USED FOR UNKNOWN INDICATION
     Dosage: 400 MG, Q12H BID
     Route: 048
     Dates: start: 20170428
  14. DEXAMETHASONE. [Suspect]
     Active Substance: DEXAMETHASONE
     Indication: PLASMA CELL MYELOMA
     Dosage: 20 MG, 2X/WEEK
     Route: 048
     Dates: start: 20170818
  15. CLONAZEPAM. [Concomitant]
     Active Substance: CLONAZEPAM
     Indication: ANXIETY
     Dosage: 0.5 MG, PRN
     Route: 048
     Dates: start: 20151122
  16. ALBUTEROL SULFATE. [Concomitant]
     Active Substance: ALBUTEROL SULFATE
     Indication: COUGH
     Dosage: 1-2 PUFF, Q4H PRN
     Route: 055
     Dates: start: 20170428

REACTIONS (1)
  - Asthenia [Recovered/Resolved]

NARRATIVE: CASE EVENT DATE: 20171006
